FAERS Safety Report 25137888 (Version 6)
Quarter: 2025Q3

REPORT INFORMATION
  Report Type: Report from Study
  Country: CA (occurrence: CA)
  Receive Date: 20250329
  Receipt Date: 20250915
  Transmission Date: 20251020
  Serious: Yes (Death, Hospitalization, Other)
  Sender: CELLTRION
  Company Number: CA-CELLTRION INC.-2025CA009083

PATIENT

DRUGS (6)
  1. USTEKINUMAB [Suspect]
     Active Substance: USTEKINUMAB
     Indication: Psoriasis
     Route: 058
     Dates: start: 20110509, end: 20250307
  2. USTEKINUMAB [Suspect]
     Active Substance: USTEKINUMAB
     Route: 058
     Dates: start: 20250105
  3. USTEKINUMAB [Suspect]
     Active Substance: USTEKINUMAB
     Route: 058
     Dates: start: 20250703
  4. AMLODIPINE [Concomitant]
     Active Substance: AMLODIPINE BESYLATE
  5. SODIUM BICARBONATE [Concomitant]
     Active Substance: SODIUM BICARBONATE
  6. URSODIOL [Concomitant]
     Active Substance: URSODIOL

REACTIONS (4)
  - Death [Fatal]
  - Renal failure [Not Recovered/Not Resolved]
  - Malaise [Unknown]
  - Nausea [Unknown]

NARRATIVE: CASE EVENT DATE: 20250321
